FAERS Safety Report 4721391-8 (Version None)
Quarter: 2005Q3

REPORT INFORMATION
  Report Type: 
  Country: None (occurrence: None)
  Receive Date: 20050721
  Receipt Date: 20040803
  Transmission Date: 20060218
  Serious: Yes (Hospitalization)
  Sender: FDA-Public Use
  Company Number: US-BRISTOL-MYERS SQUIBB COMPANY-12659843

PATIENT
  Age: 81 Year
  Sex: Female
  Weight: 92 kg

DRUGS (6)
  1. COUMADIN [Suspect]
     Indication: PULMONARY EMBOLISM
     Dosage: 2 BOTTLES OF 10 MG: LIST # 017-470, CONTROL # ERD273B, TRACKING# 2621882 AND PO# 0009335399
     Route: 048
     Dates: start: 20021201
  2. FUROSEMIDE [Concomitant]
  3. METOPROLOL [Concomitant]
  4. CAPTOPRIL [Concomitant]
  5. HUMULIN 70/30 [Concomitant]
  6. POTASSIUM CHLORIDE [Concomitant]

REACTIONS (2)
  - ABDOMINAL PAIN [None]
  - INTERNATIONAL NORMALISED RATIO DECREASED [None]
